FAERS Safety Report 25110294 (Version 1)
Quarter: 2025Q1

REPORT INFORMATION
  Report Type: Spontaneous
  Country: US (occurrence: US)
  Receive Date: 20250324
  Receipt Date: 20250324
  Transmission Date: 20250409
  Serious: No
  Sender: AMGEN
  Company Number: US-AMGEN-USASP2025055802

PATIENT
  Age: 61 Year
  Sex: Male

DRUGS (2)
  1. REPATHA [Suspect]
     Active Substance: EVOLOCUMAB
     Indication: Blood cholesterol abnormal
     Dosage: 140 MILLIGRAM, Q2WK (ROUTE OF ADMINISTRATION: STOMACH )
     Route: 065
     Dates: start: 202503
  2. HUMIRA [Concomitant]
     Active Substance: ADALIMUMAB
     Indication: Arthritis

REACTIONS (5)
  - COVID-19 [Not Recovered/Not Resolved]
  - Injection site pain [Unknown]
  - Product communication issue [Unknown]
  - Accidental exposure to product [Unknown]
  - Drug dose omission by device [Unknown]

NARRATIVE: CASE EVENT DATE: 20250317
